FAERS Safety Report 19065013 (Version 2)
Quarter: 2021Q2

REPORT INFORMATION
  Report Type: Spontaneous
  Country: JP (occurrence: JP)
  Receive Date: 20210326
  Receipt Date: 20210406
  Transmission Date: 20210717
  Serious: Yes (Death, Hospitalization)
  Sender: FDA-Public Use
  Company Number: JP-ASTRAZENECA-2021A186778

PATIENT
  Age: 76 Year
  Sex: Female

DRUGS (12)
  1. CARVEDILOL. [Suspect]
     Active Substance: CARVEDILOL
     Route: 048
     Dates: end: 20210301
  2. TRICHLORMETHIAZIDE [Concomitant]
     Active Substance: TRICHLORMETHIAZIDE
     Dosage: 2.0MG UNKNOWN
     Route: 048
     Dates: end: 20210217
  3. MAGNESIUM OXIDE. [Concomitant]
     Active Substance: MAGNESIUM OXIDE
     Route: 048
     Dates: end: 20210217
  4. TAGRISSO [Suspect]
     Active Substance: OSIMERTINIB
     Indication: NON-SMALL CELL LUNG CANCER
     Route: 048
     Dates: start: 20210227, end: 20210303
  5. ELIQUIS [Concomitant]
     Active Substance: APIXABAN
  6. EDIROL [Concomitant]
     Active Substance: ELDECALCITOL
     Dosage: 0.75UG UNKNOWN
     Route: 048
  7. VASOLAN [Concomitant]
  8. TAGRISSO [Suspect]
     Active Substance: OSIMERTINIB
     Indication: NON-SMALL CELL LUNG CANCER
     Route: 048
     Dates: start: 20191229, end: 20210217
  9. SPIRONOLACTONE. [Concomitant]
     Active Substance: SPIRONOLACTONE
     Dosage: 12.5MG UNKNOWN
     Route: 048
     Dates: end: 20210217
  10. ROSUVASTATIN. [Concomitant]
     Active Substance: ROSUVASTATIN
     Dosage: 5.0MG UNKNOWN
     Route: 048
  11. ALENDRONATE [Concomitant]
     Active Substance: ALENDRONATE SODIUM
     Route: 048
  12. NEXIUM [Concomitant]
     Active Substance: ESOMEPRAZOLE MAGNESIUM

REACTIONS (7)
  - Diarrhoea [Recovering/Resolving]
  - Decreased appetite [Unknown]
  - Cardiac failure [Recovering/Resolving]
  - Hypotension [Unknown]
  - Electrocardiogram QT prolonged [Fatal]
  - Rash [Unknown]
  - Dehydration [Recovering/Resolving]

NARRATIVE: CASE EVENT DATE: 202102
